FAERS Safety Report 20988596 (Version 1)
Quarter: 2022Q2

REPORT INFORMATION
  Report Type: Spontaneous
  Country: US (occurrence: US)
  Receive Date: 20220621
  Receipt Date: 20220621
  Transmission Date: 20220721
  Serious: No
  Sender: FDA-Public Use
  Company Number: US-BRISTOL-MYERS SQUIBB COMPANY-2022-022558

PATIENT
  Age: 68 Year
  Sex: Female

DRUGS (1)
  1. REVLIMID [Suspect]
     Active Substance: LENALIDOMIDE
     Indication: Plasma cell myeloma
     Dosage: FREQUENCY :  DAILY FOR 21 DAYS ON AND 7 DAYS OFF .
     Route: 048
     Dates: start: 20220318

REACTIONS (4)
  - Nausea [Unknown]
  - No adverse event [Unknown]
  - Product distribution issue [Unknown]
  - Adverse event [Unknown]
